FAERS Safety Report 7383289-9 (Version None)
Quarter: 2011Q1

REPORT INFORMATION
  Report Type: 
  Country: None (occurrence: None)
  Receive Date: 20110325
  Receipt Date: 20110325
  Transmission Date: 20110831
  Serious: Yes (Hospitalization)
  Sender: FDA-Public Use
  Company Number: None

PATIENT
  Age: 89 Year
  Sex: Female
  Weight: 52.2 kg

DRUGS (15)
  1. COUMADIN [Suspect]
     Indication: ATRIAL FIBRILLATION
     Dosage: 4MG DAILY PO  CHRONIC
     Route: 048
  2. FOLIC ACID [Concomitant]
  3. NORVASC [Concomitant]
  4. HYDRODIURIL [Concomitant]
  5. CLOBETASOL PROPIONATE [Concomitant]
  6. CELEXA [Concomitant]
  7. ZANTAC [Concomitant]
  8. METOPROLOL TARTRATE [Concomitant]
  9. COLACE [Concomitant]
  10. VIGAMOX [Concomitant]
  11. VIT D [Concomitant]
  12. COZAAR [Concomitant]
  13. PREDNISOLONE [Concomitant]
  14. CALCIUM [Concomitant]
  15. SENOKOT [Concomitant]

REACTIONS (4)
  - INTERNATIONAL NORMALISED RATIO INCREASED [None]
  - PROTHROMBIN TIME PROLONGED [None]
  - VAGINAL HAEMORRHAGE [None]
  - URINARY TRACT INFECTION [None]
